FAERS Safety Report 19369179 (Version 2)
Quarter: 2021Q2

REPORT INFORMATION
  Report Type: Report from Study
  Country: KR (occurrence: KR)
  Receive Date: 20210603
  Receipt Date: 20210605
  Transmission Date: 20210717
  Serious: Yes (Other)
  Sender: FDA-Public Use
  Company Number: KR-AMGEN-KORCT2021084173

PATIENT
  Age: 80 Year
  Sex: Male

DRUGS (17)
  1. CISPLATIN. [Concomitant]
     Active Substance: CISPLATIN
     Dosage: 102 MG
     Dates: start: 20100906, end: 20100906
  2. PEMETREXED. [Concomitant]
     Active Substance: PEMETREXED
     Indication: PRODUCT USED FOR UNKNOWN INDICATION
     Dosage: 855 MG
     Dates: start: 20100705, end: 20100705
  3. PEMETREXED. [Concomitant]
     Active Substance: PEMETREXED
     Dosage: 855 MG
     Dates: start: 20100906, end: 20100906
  4. PEMETREXED. [Concomitant]
     Active Substance: PEMETREXED
     Dosage: 855 MG
     Dates: start: 20100726, end: 20100726
  5. FOLIC ACID. [Concomitant]
     Active Substance: FOLIC ACID
     Indication: PRODUCT USED FOR UNKNOWN INDICATION
     Dosage: 1 MG
  6. CISPLATIN. [Concomitant]
     Active Substance: CISPLATIN
     Dosage: 102 MG
     Dates: start: 20100816, end: 20100816
  7. COBAMAMIDE [Concomitant]
     Active Substance: COBAMAMIDE
     Indication: PRODUCT USED FOR UNKNOWN INDICATION
     Dosage: 1000 UNK
     Dates: start: 20100705
  8. DEXAMETHASONE. [Concomitant]
     Active Substance: DEXAMETHASONE
     Dosage: 5.25 MG
     Dates: start: 20100726, end: 20100730
  9. FILGRASTIM [Suspect]
     Active Substance: FILGRASTIM
     Indication: PRODUCT USED FOR UNKNOWN INDICATION
     Dosage: 150 UNK
     Route: 065
     Dates: start: 20100913, end: 20100913
  10. CISPLATIN. [Concomitant]
     Active Substance: CISPLATIN
     Indication: PRODUCT USED FOR UNKNOWN INDICATION
     Dosage: 102 MG
     Dates: start: 20100705, end: 20100705
  11. CISPLATIN. [Concomitant]
     Active Substance: CISPLATIN
     Dosage: 102 MG
     Dates: start: 20100726, end: 20100726
  12. DEXAMETHASONE. [Concomitant]
     Active Substance: DEXAMETHASONE
     Indication: PRODUCT USED FOR UNKNOWN INDICATION
     Dosage: 5.25 MG
     Dates: start: 20100705, end: 20100708
  13. DEXAMETHASONE. [Concomitant]
     Active Substance: DEXAMETHASONE
     Dosage: 5.25 MG
     Dates: start: 20100816, end: 20100819
  14. DEXAMETHASONE. [Concomitant]
     Active Substance: DEXAMETHASONE
     Dosage: 5.25 MG
     Dates: start: 20100906, end: 20100909
  15. FOLIC ACID. [Concomitant]
     Active Substance: FOLIC ACID
     Dosage: 1 MG
     Dates: start: 20100705
  16. PEMETREXED. [Concomitant]
     Active Substance: PEMETREXED
     Dosage: 855 MG
     Dates: start: 20100816, end: 20100816
  17. CYANOCOBALAMIN. [Concomitant]
     Active Substance: CYANOCOBALAMIN
     Indication: PRODUCT USED FOR UNKNOWN INDICATION
     Dosage: 1000 UNK
     Dates: start: 20100816

REACTIONS (1)
  - Neutropenia [Recovered/Resolved]

NARRATIVE: CASE EVENT DATE: 20100913
